APPROVED DRUG PRODUCT: FLUOROURACIL
Active Ingredient: FLUOROURACIL
Strength: 5GM/100ML (50MG/ML)
Dosage Form/Route: INJECTABLE;INJECTION
Application: A202669 | Product #002 | TE Code: AP
Applicant: EUGIA PHARMA SPECIALITIES LTD
Approved: Jul 17, 2012 | RLD: No | RS: No | Type: RX